FAERS Safety Report 4304238-3 (Version None)
Quarter: 2004Q1

REPORT INFORMATION
  Report Type: 
  Country: None (occurrence: None)
  Receive Date: 20040225
  Receipt Date: 20040213
  Transmission Date: 20041129
  Serious: Yes (Hospitalization)
  Sender: FDA-Public Use
  Company Number: WAES 0402AUS00135

PATIENT
  Age: 69 Year
  Sex: Female
  Weight: 100 kg

DRUGS (9)
  1. AMITRIPTYLINE HYDROCHLORIDE [Concomitant]
     Dates: end: 20020314
  2. ASPIRIN [Concomitant]
     Indication: MYOCARDIAL ISCHAEMIA
     Route: 048
  3. CITALOPRAM HYDROBROMIDE [Concomitant]
     Indication: DEPRESSION
     Route: 048
     Dates: start: 20010202
  4. FUROSEMIDE [Concomitant]
     Indication: ESSENTIAL HYPERTENSION
     Route: 048
  5. GEMFIBROZIL [Suspect]
     Indication: XANTHOMATOSIS
     Route: 048
     Dates: start: 20020206, end: 20020311
  6. HYDRALAZINE HYDROCHLORIDE [Concomitant]
  7. HYDROCHLOROTHIAZIDE AND IRBESARTAN [Concomitant]
     Indication: ESSENTIAL HYPERTENSION
     Route: 048
  8. METOPROLOL TARTRATE [Concomitant]
     Indication: ESSENTIAL HYPERTENSION
     Route: 048
  9. ZOCOR [Suspect]
     Route: 048
     Dates: start: 20020101, end: 20020311

REACTIONS (5)
  - BLOOD CREATINE PHOSPHOKINASE INCREASED [None]
  - FATIGUE [None]
  - MYOCARDIAL INFARCTION [None]
  - MYOPATHY [None]
  - RHABDOMYOLYSIS [None]
